FAERS Safety Report 6437684-2 (Version None)
Quarter: 2009Q4

REPORT INFORMATION
  Report Type: 
  Country: None (occurrence: None)
  Receive Date: 20091112
  Receipt Date: 20091106
  Transmission Date: 20100525
  Serious: Yes (Death)
  Sender: FDA-Public Use
  Company Number: B0603140A

PATIENT
  Sex: Female

DRUGS (2)
  1. TYVERB [Suspect]
     Indication: BREAST CANCER
     Dosage: 1250MG PER DAY
     Route: 048
     Dates: start: 20091007, end: 20091021
  2. XELODA [Suspect]
     Indication: BREAST CANCER
     Dosage: 2000MGM2 PER DAY
     Route: 048
     Dates: start: 20091007, end: 20091021

REACTIONS (4)
  - DEATH [None]
  - DIARRHOEA [None]
  - NEUTROPENIA [None]
  - STOMATITIS [None]
